FAERS Safety Report 19946901 (Version 1)
Quarter: 2021Q4

REPORT INFORMATION
  Report Type: Spontaneous
  Country: CN (occurrence: CN)
  Receive Date: 20211012
  Receipt Date: 20211012
  Transmission Date: 20220303
  Serious: Yes (Other)
  Sender: FDA-Public Use
  Company Number: CN-BAXTER-2021BAX027174

PATIENT
  Age: 37 Year
  Sex: Female
  Weight: 60 kg

DRUGS (4)
  1. CYCLOPHOSPHAMIDE [Suspect]
     Active Substance: CYCLOPHOSPHAMIDE
     Indication: Breast cancer
     Dosage: 0.72G CYCLOPHOSPHAMIDE POWDER FOR INJECTION + 500ML SODIUM CHLORIDE INJECTION (65 DROPS/MIN)
     Route: 041
     Dates: start: 20191218, end: 20191218
  2. SODIUM CHLORIDE [Suspect]
     Active Substance: SODIUM CHLORIDE
     Indication: Medication dilution
     Dosage: 0.72G CYCLOPHOSPHAMIDE POWDER FOR INJECTION + 500ML SODIUM CHLORIDE INJECTION (65 DROPS/MIN)
     Route: 041
     Dates: start: 20191218, end: 20191218
  3. SODIUM CHLORIDE [Suspect]
     Active Substance: SODIUM CHLORIDE
     Dosage: 90MG DOCETAXEL INJECTION + 500ML SODIUM CHLORIDE INJECTION (65 DROPS/MIN)
     Route: 041
     Dates: start: 20191218, end: 20191218
  4. DOCETAXEL [Suspect]
     Active Substance: DOCETAXEL
     Indication: Breast cancer
     Dosage: 90MG DOCETAXEL INJECTION + 500ML SODIUM CHLORIDE INJECTION (65 DROPS/MIN)
     Route: 041
     Dates: start: 20191218, end: 20191218

REACTIONS (1)
  - Myelosuppression [Recovered/Resolved]

NARRATIVE: CASE EVENT DATE: 20191222
